FAERS Safety Report 9900234 (Version 2)
Quarter: 2014Q1

REPORT INFORMATION
  Report Type: Spontaneous
  Country: US (occurrence: US)
  Receive Date: 20140215
  Receipt Date: 20140220
  Transmission Date: 20141002
  Serious: Yes (Life-Threatening, Other)
  Sender: FDA-Public Use
  Company Number: US-ROCHE-1349615

PATIENT
  Age: 60 Year
  Sex: Male
  Weight: 85.35 kg

DRUGS (1)
  1. RITUXAN [Suspect]
     Indication: GRANULOMATOSIS WITH POLYANGIITIS
     Route: 042
     Dates: start: 20070827, end: 20070930

REACTIONS (2)
  - Gastrointestinal perforation [Unknown]
  - Diverticular perforation [Recovered/Resolved]
